FAERS Safety Report 6675240-1 (Version None)
Quarter: 2010Q2

REPORT INFORMATION
  Report Type: 
  Country: None (occurrence: None)
  Receive Date: 20100409
  Receipt Date: 20100227
  Transmission Date: 20101027
  Serious: Yes (Other)
  Sender: FDA-Public Use
  Company Number: US-BAYER-201018050GPV

PATIENT
  Age: 74 Year
  Sex: Male

DRUGS (5)
  1. DACARBAZINE [Suspect]
     Indication: MULTIPLE MYELOMA
     Route: 065
  2. DOXORUBICIN HCL [Suspect]
     Indication: MULTIPLE MYELOMA
     Route: 065
  3. BLEOMYCIN SULFATE [Suspect]
     Indication: MULTIPLE MYELOMA
     Route: 065
  4. VINCRISTINE [Suspect]
     Indication: MULTIPLE MYELOMA
     Route: 065
  5. DEXAMETHASONE [Suspect]
     Indication: MULTIPLE MYELOMA

REACTIONS (1)
  - ACUTE LYMPHOCYTIC LEUKAEMIA [None]
